FAERS Safety Report 6393957-3 (Version None)
Quarter: 2009Q4

REPORT INFORMATION
  Report Type: 
  Country: None (occurrence: None)
  Receive Date: 20091008
  Receipt Date: 20090930
  Transmission Date: 20100525
  Serious: Yes (Hospitalization)
  Sender: FDA-Public Use
  Company Number: US-ASTRAZENECA-2009SE16797

PATIENT
  Age: 27 Year
  Sex: Female
  Weight: 54.4 kg

DRUGS (3)
  1. SEROQUEL [Suspect]
     Route: 048
     Dates: start: 20081001
  2. GEODON [Concomitant]
  3. NEXIUM [Concomitant]
     Indication: GASTROOESOPHAGEAL REFLUX DISEASE

REACTIONS (5)
  - ALOPECIA [None]
  - BREAST CYST [None]
  - CHEST PAIN [None]
  - HEADACHE [None]
  - INSOMNIA [None]
